FAERS Safety Report 12707791 (Version 1)
Quarter: 2016Q3

REPORT INFORMATION
  Report Type: Spontaneous
  Country: BE (occurrence: BE)
  Receive Date: 20160901
  Receipt Date: 20160901
  Transmission Date: 20161109
  Serious: No
  Sender: FDA-Public Use
  Company Number: BE-ELI_LILLY_AND_COMPANY-BE201608011936

PATIENT
  Age: 47 Year
  Sex: Male

DRUGS (5)
  1. PANTOMED                           /00178901/ [Concomitant]
     Route: 065
  2. PERINDOPRIL [Concomitant]
     Active Substance: PERINDOPRIL
  3. CIALIS [Suspect]
     Active Substance: TADALAFIL
     Indication: ERECTILE DYSFUNCTION
     Dosage: 5 MG, QD
     Route: 065
     Dates: start: 20160406
  4. CIALIS [Suspect]
     Active Substance: TADALAFIL
     Indication: LOWER URINARY TRACT SYMPTOMS
  5. CIALIS [Suspect]
     Active Substance: TADALAFIL
     Indication: PROSTATISM

REACTIONS (2)
  - Vision blurred [Unknown]
  - Diplopia [Unknown]
